FAERS Safety Report 5941370-2 (Version None)
Quarter: 2008Q4

REPORT INFORMATION
  Report Type: 
  Country: None (occurrence: None)
  Receive Date: 20081105
  Receipt Date: 20081101
  Transmission Date: 20090506
  Serious: Yes (Life-Threatening, Hospitalization)
  Sender: FDA-Public Use
  Company Number: AU-JNJFOC-20081003396

PATIENT
  Sex: Male

DRUGS (4)
  1. ITRACONAZOLE [Suspect]
     Indication: SPUTUM CULTURE POSITIVE
     Route: 065
  2. PANCURONIUM [Concomitant]
     Indication: MUSCLE RELAXANT THERAPY
     Route: 065
  3. HYDROCORTISONE [Concomitant]
     Indication: ASTHMA
     Dosage: OCTOBER
     Route: 065
  4. FRUSEMIDE [Concomitant]
     Indication: PULMONARY CONGESTION
     Route: 065

REACTIONS (1)
  - RHABDOMYOLYSIS [None]
